FAERS Safety Report 8394460-1 (Version None)
Quarter: 2012Q2

REPORT INFORMATION
  Report Type: 
  Country: None (occurrence: None)
  Receive Date: 20120530
  Receipt Date: 20120523
  Transmission Date: 20120825
  Serious: Yes (Hospitalization)
  Sender: FDA-Public Use
  Company Number: PHHY2012JP028990

PATIENT
  Age: 72 Year
  Sex: Female

DRUGS (3)
  1. PHENOBARBITAL TAB [Concomitant]
     Dosage: 200 MG, UNK
     Dates: start: 20120327, end: 20120402
  2. TEGRETOL [Suspect]
     Indication: CONVULSION
     Dosage: 100 MG, DAILY
     Route: 048
     Dates: start: 20120327, end: 20120402
  3. KEPPRA [Concomitant]
     Dosage: 500 MG, UNK
     Route: 048
     Dates: start: 20120327

REACTIONS (2)
  - ALTERED STATE OF CONSCIOUSNESS [None]
  - AMYLASE INCREASED [None]
